FAERS Safety Report 13980440 (Version 2)
Quarter: 2017Q3

REPORT INFORMATION
  Report Type: Spontaneous
  Country: US (occurrence: US)
  Receive Date: 20170918
  Receipt Date: 20170927
  Transmission Date: 20171128
  Serious: Yes (Other)
  Sender: FDA-Public Use
  Company Number: US-AUROBINDO-AUR-APL-2017-40184

PATIENT
  Age: 43 Year
  Sex: Male

DRUGS (6)
  1. COTRIMOXAZOLE [Suspect]
     Active Substance: SULFAMETHOXAZOLE\TRIMETHOPRIM
     Indication: NOCARDIOSIS
     Route: 042
  2. MEROPENEM. [Suspect]
     Active Substance: MEROPENEM
     Indication: ACTINOMYCES TEST POSITIVE
  3. MEROPENEM. [Suspect]
     Active Substance: MEROPENEM
     Indication: NOCARDIOSIS
     Route: 042
  4. BENZYLPENICILLIN [Suspect]
     Active Substance: PENICILLIN G
     Indication: ACTINOMYCES TEST POSITIVE
  5. BENZYLPENICILLIN [Suspect]
     Active Substance: PENICILLIN G
     Indication: NOCARDIOSIS
     Route: 042
  6. COTRIMOXAZOLE [Suspect]
     Active Substance: SULFAMETHOXAZOLE\TRIMETHOPRIM
     Indication: ACTINOMYCES TEST POSITIVE

REACTIONS (3)
  - Thrombocytopenia [Unknown]
  - Fluid overload [Unknown]
  - Partial seizures [Unknown]
